FAERS Safety Report 4945818-1 (Version None)
Quarter: 2006Q1

REPORT INFORMATION
  Report Type: 
  Country: None (occurrence: None)
  Receive Date: 20060316
  Receipt Date: 20060216
  Transmission Date: 20060701
  Serious: Yes (Death, Hospitalization)
  Sender: FDA-Public Use
  Company Number: 2006CG00345

PATIENT
  Age: 28 Year
  Sex: Male
  Weight: 56 kg

DRUGS (9)
  1. OMEPRAZOLE [Suspect]
     Route: 048
     Dates: start: 20060202, end: 20060207
  2. TRANXENE [Suspect]
     Dates: start: 20060205, end: 20060207
  3. ROCEPHIN [Suspect]
     Dates: start: 20060203, end: 20060207
  4. OFLOCET [Suspect]
     Dates: start: 20060201, end: 20060207
  5. GLEEVEC [Suspect]
     Route: 042
     Dates: start: 20060201, end: 20060207
  6. VFEND [Suspect]
     Dates: start: 20060203, end: 20060207
  7. SPECIAFOLDINE [Concomitant]
  8. METHOTREXATE [Concomitant]
  9. PURINETHOL [Concomitant]

REACTIONS (4)
  - ANURIA [None]
  - HEPATITIS FULMINANT [None]
  - RALES [None]
  - TACHYCARDIA [None]
